FAERS Safety Report 12060769 (Version 1)
Quarter: 2016Q1

REPORT INFORMATION
  Report Type: Report from Study
  Country: UA (occurrence: US)
  Receive Date: 20160210
  Receipt Date: 20160210
  Transmission Date: 20160526
  Serious: Yes (Other)
  Sender: FDA-Public Use
  Company Number: UA-AMAG PHARMACEUTICALS, INC.-AMAG201500302

PATIENT

DRUGS (1)
  1. MAKENA [Suspect]
     Active Substance: HYDROXYPROGESTERONE CAPROATE
     Indication: EXPOSURE DURING PREGNANCY
     Dosage: 250 MG, WEEKLY

REACTIONS (1)
  - Abortion spontaneous [Recovered/Resolved]
